FAERS Safety Report 14272651 (Version 1)
Quarter: 2017Q4

REPORT INFORMATION
  Report Type: Spontaneous
  Country: US (occurrence: US)
  Receive Date: 20171211
  Receipt Date: 20171211
  Transmission Date: 20180321
  Serious: Yes (Life-Threatening)
  Sender: FDA-Public Use
  Company Number: None

PATIENT
  Age: 25 Year
  Sex: Male
  Weight: 69.75 kg

DRUGS (1)
  1. BUPRENORPHINE HYDROCHLORIDE 8 MG SUBLINGUAL [Suspect]
     Active Substance: BUPRENORPHINE HYDROCHLORIDE
     Indication: DEPENDENCE
     Dosage: ?          QUANTITY:1 TABLET(S);?
     Route: 060

REACTIONS (4)
  - Product substitution issue [None]
  - Burning sensation [None]
  - Drug ineffective [None]
  - Dysgeusia [None]

NARRATIVE: CASE EVENT DATE: 20171129
